FAERS Safety Report 4525193-7 (Version None)
Quarter: 2004Q4

REPORT INFORMATION
  Report Type: 
  Country: None (occurrence: None)
  Receive Date: 20041116
  Receipt Date: 20040806
  Transmission Date: 20050328
  Serious: No
  Sender: FDA-Public Use
  Company Number: S04-USA-04921-01

PATIENT
  Age: 84 Year
  Sex: Female

DRUGS (14)
  1. NAMENDA [Suspect]
     Indication: DEMENTIA
     Dosage: 15 MG QD PO
     Route: 048
  2. NAMENDA [Suspect]
     Indication: DEMENTIA
     Dosage: 5 MG QD PO
     Route: 048
     Dates: start: 20040701
  3. ARICEPT [Concomitant]
  4. LOPID [Concomitant]
  5. TIAZAC [Concomitant]
  6. TOPROL-XL [Concomitant]
  7. SYNTHROID [Concomitant]
  8. SPIRONOLACTONE [Concomitant]
  9. ZOCOR [Concomitant]
  10. MOTRIN [Concomitant]
  11. VICODIN [Concomitant]
  12. ASPIRIN [Concomitant]
  13. VITAMIN C [Concomitant]
  14. VITAMIN E [Concomitant]

REACTIONS (1)
  - BLOOD PRESSURE INCREASED [None]
